FAERS Safety Report 8392722-5 (Version None)
Quarter: 2012Q2

REPORT INFORMATION
  Report Type: 
  Country: None (occurrence: None)
  Receive Date: 20120529
  Receipt Date: 20120522
  Transmission Date: 20120825
  Serious: Yes (Other)
  Sender: FDA-Public Use
  Company Number: US-ELI_LILLY_AND_COMPANY-US201205008522

PATIENT
  Sex: Female

DRUGS (6)
  1. HUMALOG [Suspect]
     Dosage: UNK, UNKNOWN
  2. HUMALOG [Suspect]
     Dosage: UNK, UNKNOWN
  3. HUMALOG [Suspect]
     Dosage: UNK, UNKNOWN
  4. HUMALOG [Suspect]
     Dosage: UNK, UNKNOWN
  5. HUMALOG [Suspect]
     Indication: DIABETES MELLITUS
     Dosage: UNK, UNKNOWN
  6. HUMALOG [Suspect]
     Dosage: UNK, UNKNOWN

REACTIONS (4)
  - LOWER LIMB FRACTURE [None]
  - MOBILITY DECREASED [None]
  - HIP FRACTURE [None]
  - FALL [None]
